FAERS Safety Report 23260960 (Version 2)
Quarter: 2023Q4

REPORT INFORMATION
  Report Type: Spontaneous
  Country: FR (occurrence: FR)
  Receive Date: 20231205
  Receipt Date: 20231227
  Transmission Date: 20240109
  Serious: Yes (Other)
  Sender: FDA-Public Use
  Company Number: None

PATIENT
  Age: 49 Year
  Sex: Male

DRUGS (2)
  1. RITUXIMAB [Suspect]
     Active Substance: RITUXIMAB
     Indication: Immune thrombocytopenia
     Dosage: MOST RECENT DOSE: 18/MAR/2023
     Route: 065
     Dates: start: 20230225
  2. SPIKEVAX (ELASOMERAN) [Suspect]
     Active Substance: ELASOMERAN
     Indication: COVID-19 immunisation
     Route: 065
     Dates: start: 20211231

REACTIONS (1)
  - Pain in extremity [Recovering/Resolving]

NARRATIVE: CASE EVENT DATE: 20220201
